FAERS Safety Report 8059909-2 (Version None)
Quarter: 2012Q1

REPORT INFORMATION
  Report Type: 
  Country: None (occurrence: None)
  Receive Date: 20120120
  Receipt Date: 20120117
  Transmission Date: 20120608
  Serious: Yes (Disabling, Other)
  Sender: FDA-Public Use
  Company Number: US-PFIZER INC-2012013937

PATIENT
  Sex: Male
  Weight: 79.365 kg

DRUGS (4)
  1. PLAVIX [Concomitant]
     Indication: CARDIAC DISORDER
     Dosage: 75 MG, DAILY
  2. LYRICA [Suspect]
     Dosage: 75 MG, 3X/DAY(ONE IN THE MORNING, ONE IN NOON AND TWO AT NIGHT)
  3. LYRICA [Suspect]
     Indication: NEUROPATHY PERIPHERAL
     Dosage: 150 MG, 2X/DAY
  4. METFORMIN [Concomitant]
     Indication: DIABETES MELLITUS
     Dosage: 1000 MG, DAILY

REACTIONS (4)
  - CARDIAC DISORDER [None]
  - BLOOD PRESSURE DECREASED [None]
  - DIABETES MELLITUS [None]
  - CHRONIC OBSTRUCTIVE PULMONARY DISEASE [None]
